FAERS Safety Report 25177698 (Version 1)
Quarter: 2025Q2

REPORT INFORMATION
  Report Type: Spontaneous
  Country: US (occurrence: US)
  Receive Date: 20250409
  Receipt Date: 20250409
  Transmission Date: 20250717
  Serious: No
  Sender: PHARMACOSMOS
  Company Number: US-G1 THERAPEUTICS-2024G1US0000066

PATIENT

DRUGS (1)
  1. COSELA [Suspect]
     Active Substance: TRILACICLIB DIHYDROCHLORIDE
     Indication: Product used for unknown indication

REACTIONS (1)
  - Infusion site pain [Unknown]
